FAERS Safety Report 9405368 (Version 1)
Quarter: 2013Q3

REPORT INFORMATION
  Report Type: Spontaneous
  Country: JP (occurrence: JP)
  Receive Date: 20130717
  Receipt Date: 20130717
  Transmission Date: 20140515
  Serious: Yes (Other)
  Sender: FDA-Public Use
  Company Number: JP-BRACCO-007231

PATIENT
  Age: 66 Year
  Sex: Female

DRUGS (1)
  1. IOPAMIRON [Suspect]
     Indication: DIAGNOSTIC PROCEDURE
     Dates: start: 201008, end: 201008

REACTIONS (1)
  - Drug-induced liver injury [Unknown]
